FAERS Safety Report 20832776 (Version 1)
Quarter: 2022Q2

REPORT INFORMATION
  Report Type: 
  Country: None (occurrence: None)
  Receive Date: 20220516
  Receipt Date: 20220516
  Transmission Date: 20220720
  Serious: No
  Sender: FDA-Public Use
  Company Number: CA-ROCHE-2824957

PATIENT
  Weight: 77.1 kg

DRUGS (8)
  1. AVASTIN [Suspect]
     Active Substance: BEVACIZUMAB
  2. AVASTIN [Suspect]
     Active Substance: BEVACIZUMAB
     Dosage: DRUG DOSE FIRST ADMINISTERED IS 425 MG MILLIGRAM(S)?PREVIOUS INFUSION WAS ON 30/JUN/2021
  3. AVASTIN [Suspect]
     Active Substance: BEVACIZUMAB
     Dosage: ONGOING
  4. ADVAIR HFA [Concomitant]
     Active Substance: FLUTICASONE PROPIONATE\SALMETEROL XINAFOATE
  5. MVASI [Concomitant]
     Active Substance: BEVACIZUMAB-AWWB
  6. VENOFER [Concomitant]
     Active Substance: IRON SUCROSE
  7. ZIRABEV [Concomitant]
     Active Substance: BEVACIZUMAB-BVZR
  8. COVID-19 VACCINE [Concomitant]
     Dosage: SECOND DOSE: 08/JUL/2021
     Dates: start: 20210708

REACTIONS (6)
  - Diverticulitis [None]
  - Oxygen saturation decreased [None]
  - Off label use [None]
  - Blood pressure systolic increased [None]
  - COVID-19 [None]
  - Pneumonia [None]

NARRATIVE: CASE EVENT DATE: 20210101
